FAERS Safety Report 18425245 (Version 1)
Quarter: 2020Q4

REPORT INFORMATION
  Report Type: Spontaneous
  Country: US (occurrence: US)
  Receive Date: 20201023
  Receipt Date: 20201023
  Transmission Date: 20210114
  Serious: Yes (Death)
  Sender: FDA-Public Use
  Company Number: None

PATIENT
  Age: 94 Year
  Sex: Female
  Weight: 54 kg

DRUGS (5)
  1. IRON SUPPLEMENT [Concomitant]
     Active Substance: IRON
  2. KEYTRUDA [Suspect]
     Active Substance: PEMBROLIZUMAB
     Indication: NON-SMALL CELL LUNG CANCER
     Dosage: ?          OTHER FREQUENCY:3 INFUSIONS;?
     Route: 042
  3. PACEMAKER [Concomitant]
     Active Substance: DEVICE
  4. ENSURE [Concomitant]
     Active Substance: AMINO ACIDS\DEXTROSE\ELECTROLYTES NOS\SOYBEAN OIL\VITAMINS
  5. SYNTHROID [Concomitant]
     Active Substance: LEVOTHYROXINE SODIUM

REACTIONS (14)
  - Haematemesis [None]
  - Gastrointestinal haemorrhage [None]
  - Large intestinal obstruction [None]
  - Asthenia [None]
  - Bacterial infection [None]
  - Dehydration [None]
  - Hypotension [None]
  - Gastrointestinal inflammation [None]
  - Transfusion [None]
  - Malabsorption [None]
  - Full blood count decreased [None]
  - Diarrhoea [None]
  - Anaemia [None]
  - Intestinal perforation [None]

NARRATIVE: CASE EVENT DATE: 20200928
